FAERS Safety Report 17322228 (Version 2)
Quarter: 2020Q1

REPORT INFORMATION
  Report Type: Spontaneous
  Country: US (occurrence: US)
  Receive Date: 20200127
  Receipt Date: 20200210
  Transmission Date: 20200409
  Serious: No
  Sender: FDA-Public Use
  Company Number: US-AMGEN-USASP2020012197

PATIENT
  Age: 70 Year
  Sex: Female

DRUGS (3)
  1. SULINDAC. [Concomitant]
     Active Substance: SULINDAC
     Indication: RHEUMATOID ARTHRITIS
     Dosage: 200 MG, 2X/DAY(200MG TWICE A DAY (BID))
  2. HYDROXYCHLOROQUINE [Concomitant]
     Active Substance: HYDROXYCHLOROQUINE
     Indication: RHEUMATOID ARTHRITIS
     Dosage: 200 MG, 1X/DAY(200MG (ONCE A DAY) QD)
  3. ENBREL [Suspect]
     Active Substance: ETANERCEPT
     Indication: RHEUMATOID ARTHRITIS
     Dosage: 50 MG, 4X/DAY (50MG (SUBCUTANEOUS) SQ (FOUR TIME A DAY) QID )
     Route: 058
     Dates: start: 20180711, end: 20180923

REACTIONS (4)
  - Drug hypersensitivity [Unknown]
  - Prescribed overdose [Unknown]
  - Urticaria [Unknown]
  - Rash [Recovered/Resolved]

NARRATIVE: CASE EVENT DATE: 20180801
